FAERS Safety Report 7141172-8 (Version None)
Quarter: 2010Q4

REPORT INFORMATION
  Report Type: 
  Country: None (occurrence: None)
  Receive Date: 20101202
  Receipt Date: 20101202
  Transmission Date: 20110411
  Serious: Yes (Other)
  Sender: FDA-Public Use
  Company Number: None

PATIENT
  Age: 48 Year
  Sex: Female
  Weight: 50.8029 kg

DRUGS (2)
  1. OXYCONTIN [Suspect]
     Indication: SPINA BIFIDA
     Dosage: 40MG BID P.0
     Route: 048
     Dates: start: 20101101, end: 20101105
  2. OXYCONTIN [Suspect]
     Indication: SYSTEMIC LUPUS ERYTHEMATOSUS
     Dosage: 40MG BID P.0
     Route: 048
     Dates: start: 20101101, end: 20101105

REACTIONS (9)
  - DRUG HYPERSENSITIVITY [None]
  - HEADACHE [None]
  - INADEQUATE ANALGESIA [None]
  - LOCAL SWELLING [None]
  - OEDEMA PERIPHERAL [None]
  - SWELLING [None]
  - SWELLING FACE [None]
  - URTICARIA [None]
  - VISUAL ACUITY REDUCED [None]
